FAERS Safety Report 8409638-8 (Version None)
Quarter: 2012Q2

REPORT INFORMATION
  Report Type: 
  Country: None (occurrence: None)
  Receive Date: 20120529
  Receipt Date: 20120518
  Transmission Date: 20120825
  Serious: Yes (Life-Threatening, Hospitalization, Other)
  Sender: FDA-Public Use
  Company Number: ADR-2012-00411

PATIENT
  Age: 18 Year
  Sex: Male

DRUGS (2)
  1. BACLOFEN [Suspect]
     Indication: CEREBRAL PALSY
     Dosage: SEE B5
  2. BACLOFEN [Suspect]
     Indication: MUSCLE SPASTICITY
     Dosage: SEE B5

REACTIONS (12)
  - DEVICE CONNECTION ISSUE [None]
  - PNEUMONIA ASPIRATION [None]
  - COMPLICATION OF DEVICE REMOVAL [None]
  - HYPOTENSION [None]
  - VOMITING [None]
  - ACCIDENTAL OVERDOSE [None]
  - IMPLANT SITE FIBROSIS [None]
  - DEVICE DISLOCATION [None]
  - IMPLANT SITE EFFUSION [None]
  - ABNORMAL BEHAVIOUR [None]
  - DEVICE DAMAGE [None]
  - INCORRECT ROUTE OF DRUG ADMINISTRATION [None]
